FAERS Safety Report 4651048-3 (Version None)
Quarter: 2005Q2

REPORT INFORMATION
  Report Type: 
  Country: None (occurrence: None)
  Receive Date: 20050429
  Receipt Date: 20050416
  Transmission Date: 20051028
  Serious: Yes (Other)
  Sender: FDA-Public Use
  Company Number: 2005061105

PATIENT
  Sex: Female
  Weight: 95.2554 kg

DRUGS (4)
  1. BEXTRA [Suspect]
     Indication: OSTEOARTHRITIS
     Dosage: 20 MG (20 MG, 1 IN 1 D), ORAL
     Route: 048
     Dates: start: 20040701, end: 20040701
  2. CELEBREX [Suspect]
     Indication: OSTEOARTHRITIS
     Dosage: 200 MG (200 MG, 1 IN 1 D), UNKNOWN
     Route: 065
  3. AMITRIPTYLINE HCL [Concomitant]
  4. HYDROCHLOROTHIAZIDE [Concomitant]

REACTIONS (5)
  - KNEE OPERATION [None]
  - NAUSEA [None]
  - ORAL MUCOSAL BLISTERING [None]
  - STOMATITIS [None]
  - TONGUE DISORDER [None]
